FAERS Safety Report 6217775-1 (Version None)
Quarter: 2009Q2

REPORT INFORMATION
  Report Type: 
  Country: None (occurrence: None)
  Receive Date: 20090608
  Receipt Date: 20090506
  Transmission Date: 20091009
  Serious: No
  Sender: FDA-Public Use
  Company Number: US-BAYER-200920149NA

PATIENT
  Age: 84 Year
  Sex: Female

DRUGS (3)
  1. CIPRO [Suspect]
     Indication: CYSTITIS
     Dosage: TOTAL DAILY DOSE: 1000 MG  UNIT DOSE: 500 MG
     Route: 048
     Dates: start: 20090505
  2. THYROID MEDICATION [Concomitant]
  3. CARTIA XT [Concomitant]

REACTIONS (1)
  - DYSPHAGIA [None]
